FAERS Safety Report 7646385-4 (Version None)
Quarter: 2011Q3

REPORT INFORMATION
  Report Type: 
  Country: None (occurrence: None)
  Receive Date: 20110801
  Receipt Date: 20110720
  Transmission Date: 20111222
  Serious: Yes (Other)
  Sender: FDA-Public Use
  Company Number: US-JNJFOC-20110512734

PATIENT
  Sex: Female
  Weight: 56.7 kg

DRUGS (14)
  1. FENTANYL [Suspect]
     Route: 062
     Dates: start: 20110427
  2. PREDNISONE TAB [Concomitant]
     Indication: RHEUMATOID ARTHRITIS
     Route: 048
     Dates: start: 19890101
  3. FENTANYL [Suspect]
     Indication: RHEUMATOID ARTHRITIS
     Route: 062
     Dates: start: 20100801, end: 20110401
  4. FENTANYL-100 [Suspect]
     Route: 062
     Dates: start: 20110501, end: 20110601
  5. METHOTREXATE [Suspect]
     Indication: RHEUMATOID ARTHRITIS
     Route: 065
     Dates: start: 20110401, end: 20110401
  6. FENTANYL-100 [Suspect]
     Indication: RHEUMATOID ARTHRITIS
     Route: 062
     Dates: start: 20101101, end: 20101101
  7. FENTANYL-100 [Suspect]
     Route: 062
     Dates: start: 20110401, end: 20110501
  8. FENTANYL-100 [Suspect]
     Route: 062
     Dates: start: 20110401, end: 20110427
  9. LISINOPRIL [Concomitant]
     Indication: HYPERTENSION
     Route: 048
     Dates: start: 19910101
  10. COPAXONE [Concomitant]
     Indication: HERPES OPHTHALMIC
     Route: 048
     Dates: start: 20070101
  11. FENTANYL [Suspect]
     Route: 062
     Dates: start: 20101101, end: 20110401
  12. ACYCLOVIR [Concomitant]
     Indication: HERPES OPHTHALMIC
     Route: 048
     Dates: start: 20070101
  13. ACYCLOVIR [Concomitant]
     Indication: HERPES ZOSTER
     Route: 048
     Dates: start: 20070101
  14. FENTANYL-100 [Suspect]
     Indication: RHEUMATOID ARTHRITIS
     Route: 062
     Dates: start: 20100801, end: 20101101

REACTIONS (6)
  - RENAL FAILURE ACUTE [None]
  - HERPES ZOSTER [None]
  - PRODUCT QUALITY ISSUE [None]
  - RHEUMATOID ARTHRITIS [None]
  - EXPIRED DRUG ADMINISTERED [None]
  - DRUG DISPENSING ERROR [None]
